FAERS Safety Report 20834163 (Version 1)
Quarter: 2022Q2

REPORT INFORMATION
  Report Type: Spontaneous
  Country: US (occurrence: None)
  Receive Date: 20220514
  Receipt Date: 20220514
  Transmission Date: 20220721
  Serious: Yes (Other)
  Sender: FDA-Public Use
  Company Number: None

PATIENT
  Age: 77 Year
  Sex: Male
  Weight: 69.75 kg

DRUGS (8)
  1. PRALUENT [Suspect]
     Active Substance: ALIROCUMAB
     Indication: Coronary artery disease
     Dosage: OTHER QUANTITY : 1 INJECTION(S);?OTHER FREQUENCY : Q2W;?
     Route: 058
     Dates: start: 20210301, end: 20220512
  2. PRALUENT [Suspect]
     Active Substance: ALIROCUMAB
     Indication: Type V hyperlipidaemia
  3. TAMSULOSIN [Concomitant]
     Active Substance: TAMSULOSIN
  4. METFORMIN [Concomitant]
     Active Substance: METFORMIN HYDROCHLORIDE
  5. EMPAGLIFLOZIN [Concomitant]
     Active Substance: EMPAGLIFLOZIN
  6. CARVEDILOL [Concomitant]
  7. omega-3 fatty acids-fish oil [Concomitant]
  8. ASPIRIN [Concomitant]
     Active Substance: ASPIRIN

REACTIONS (14)
  - Myalgia [None]
  - Muscular weakness [None]
  - Mental impairment [None]
  - Fear [None]
  - Abnormal dreams [None]
  - Anxiety [None]
  - Memory impairment [None]
  - Job dissatisfaction [None]
  - Laziness [None]
  - Anxiety [None]
  - Pain [None]
  - Acute stress disorder [None]
  - Feeling abnormal [None]
  - Hypoaesthesia [None]

NARRATIVE: CASE EVENT DATE: 20220514
